FAERS Safety Report 4525442-5 (Version None)
Quarter: 2005Q1

REPORT INFORMATION
  Report Type: 
  Country: None (occurrence: None)
  Receive Date: 20041108
  Receipt Date: 20040219
  Transmission Date: 20050727
  Serious: Yes (Hospitalization)
  Sender: FDA-Public Use
  Company Number: US-JNJFOC-20040608257

PATIENT
  Sex: Male

DRUGS (1)
  1. TYLENOL [Suspect]
     Indication: SUICIDE ATTEMPT
     Dosage: 2 BOTTLES PO
     Route: 048

REACTIONS (1)
  - INTENTIONAL MISUSE [None]
